FAERS Safety Report 5514206-1 (Version None)
Quarter: 2007Q4

REPORT INFORMATION
  Report Type: 
  Country: None (occurrence: None)
  Receive Date: 20071031
  Receipt Date: 20061013
  Transmission Date: 20080405
  Serious: Yes (Hospitalization)
  Sender: FDA-Public Use
  Company Number: US018509

PATIENT
  Age: 22 Year
  Sex: Female
  Weight: 64.4108 kg

DRUGS (3)
  1. PROVIGIL [Suspect]
     Indication: SLEEP DISORDER
     Dosage: 100 MG QAM ORAL
     Route: 048
     Dates: start: 20060801, end: 20060831
  2. NORVASC [Concomitant]
  3. ATENOLOL [Concomitant]

REACTIONS (10)
  - BLOOD POTASSIUM DECREASED [None]
  - CHEST PAIN [None]
  - DIARRHOEA [None]
  - FATIGUE [None]
  - HEART RATE INCREASED [None]
  - HYPOAESTHESIA [None]
  - PETIT MAL EPILEPSY [None]
  - PSYCHOTIC DISORDER [None]
  - SOMNOLENCE [None]
  - WEIGHT DECREASED [None]
